FAERS Safety Report 6526727-3 (Version None)
Quarter: 2010Q1

REPORT INFORMATION
  Report Type: 
  Country: None (occurrence: None)
  Receive Date: 20100104
  Receipt Date: 20100104
  Transmission Date: 20100710
  Serious: Yes (Hospitalization)
  Sender: FDA-Public Use
  Company Number: None

PATIENT
  Sex: Male
  Weight: 41.7309 kg

DRUGS (1)
  1. CLONIDINE [Suspect]
     Indication: TOURETTE'S DISORDER
     Dosage: 0.1 MG 1 1QHS PO
     Route: 048
     Dates: start: 20091214, end: 20091215

REACTIONS (1)
  - SWOLLEN TONGUE [None]
